FAERS Safety Report 13256765 (Version 1)
Quarter: 2017Q1

REPORT INFORMATION
  Report Type: Spontaneous
  Country: FR (occurrence: FR)
  Receive Date: 20170221
  Receipt Date: 20170221
  Transmission Date: 20170428
  Serious: Yes (Hospitalization)
  Sender: FDA-Public Use
  Company Number: FR-ASTRAZENECA-2017SE17367

PATIENT
  Age: 20030 Day
  Sex: Female

DRUGS (10)
  1. INSPRA [Concomitant]
     Active Substance: EPLERENONE
     Dosage: 25.0MG UNKNOWN
  2. SERESTA [Concomitant]
     Active Substance: OXAZEPAM
     Dosage: 10.0MG UNKNOWN
  3. NICOPATCH [Concomitant]
     Active Substance: NICOTINE
     Dosage: 21MG/24H
     Route: 062
  4. LASILIX SPECIAL [Concomitant]
     Active Substance: FUROSEMIDE
     Dosage: 500.0MG UNKNOWN
  5. INEXIUM [Concomitant]
     Active Substance: ESOMEPRAZOLE
     Dosage: 40.0MG UNKNOWN
  6. TAHOR [Concomitant]
     Active Substance: ATORVASTATIN CALCIUM
     Dosage: 40.0MG UNKNOWN
  7. IMOVANE [Concomitant]
     Active Substance: ZOPICLONE
     Dosage: 25.0MG UNKNOWN
  8. TRIATEC [Concomitant]
     Active Substance: RAMIPRIL
     Dosage: 2.5MG UNKNOWN
  9. BRILIQUE [Suspect]
     Active Substance: TICAGRELOR
     Indication: MYOCARDIAL INFARCTION
     Route: 048
  10. KARDEGIC [Suspect]
     Active Substance: ASPIRIN LYSINE
     Indication: MYOCARDIAL INFARCTION
     Route: 048

REACTIONS (2)
  - Retroperitoneal haematoma [Recovered/Resolved]
  - Anaemia [Recovered/Resolved]

NARRATIVE: CASE EVENT DATE: 20150902
